FAERS Safety Report 4900789-9 (Version None)
Quarter: 2006Q1

REPORT INFORMATION
  Report Type: 
  Country: None (occurrence: None)
  Receive Date: 20060201
  Receipt Date: 20060123
  Transmission Date: 20060701
  Serious: Yes (Other)
  Sender: FDA-Public Use
  Company Number: GXKR2006ES00605

PATIENT
  Age: 59 Year
  Sex: Female
  Weight: 69 kg

DRUGS (2)
  1. OMEPRAZOLE [Suspect]
     Indication: GASTRIC ULCER
     Dosage: 20 MG, ORAL
     Route: 048
     Dates: start: 20050901, end: 20051017
  2. LORAZEPAM [Concomitant]

REACTIONS (2)
  - GALACTORRHOEA [None]
  - UTERINE HAEMORRHAGE [None]
